FAERS Safety Report 4368514-0 (Version None)
Quarter: 2004Q2

REPORT INFORMATION
  Report Type: 
  Country: None (occurrence: None)
  Receive Date: 20040602
  Receipt Date: 20040130
  Transmission Date: 20050107
  Serious: No
  Sender: FDA-Public Use
  Company Number: US-GLAXOSMITHKLINE-A0495932A

PATIENT
  Age: 7 Year
  Sex: Male

DRUGS (1)
  1. AUGMENTIN [Suspect]
     Dosage: 1TSP TWICE PER DAY
     Route: 048

REACTIONS (1)
  - TOOTH DISCOLOURATION [None]
